FAERS Safety Report 23563617 (Version 1)
Quarter: 2024Q1

REPORT INFORMATION
  Report Type: Spontaneous
  Country: CN (occurrence: CN)
  Receive Date: 20240226
  Receipt Date: 20240226
  Transmission Date: 20240410
  Serious: Yes (Hospitalization)
  Sender: FDA-Public Use
  Company Number: CN-BRISTOL-MYERS SQUIBB COMPANY-2024-028745

PATIENT
  Age: 79 Year
  Sex: Male
  Weight: 70 kg

DRUGS (2)
  1. REVLIMID [Suspect]
     Active Substance: LENALIDOMIDE
     Indication: B-cell lymphoma
     Route: 048
     Dates: start: 20240111, end: 20240125
  2. OBINUTUZUMAB [Concomitant]
     Active Substance: OBINUTUZUMAB
     Indication: B-cell lymphoma
     Dosage: 1000MG D1
     Dates: start: 20240125, end: 20240129

REACTIONS (2)
  - Henoch-Schonlein purpura [Recovering/Resolving]
  - Off label use [Unknown]

NARRATIVE: CASE EVENT DATE: 20240131
